FAERS Safety Report 21792204 (Version 1)
Quarter: 2022Q4

REPORT INFORMATION
  Report Type: Report from Study
  Country: BR (occurrence: None)
  Receive Date: 20221229
  Receipt Date: 20221229
  Transmission Date: 20230113
  Serious: Yes (Other)
  Sender: FDA-Public Use
  Company Number: BR-Merck Healthcare KGaA-9203899

PATIENT
  Age: 53 Year
  Sex: Female

DRUGS (5)
  1. REBIF [Suspect]
     Active Substance: INTERFERON BETA-1A
     Indication: Multiple sclerosis
     Dates: start: 20020930, end: 20041116
  2. REBIF [Suspect]
     Active Substance: INTERFERON BETA-1A
     Dates: start: 20041118, end: 20070501
  3. REBIF [Suspect]
     Active Substance: INTERFERON BETA-1A
     Dates: start: 20080502, end: 20081201
  4. REBIF [Suspect]
     Active Substance: INTERFERON BETA-1A
     Dates: start: 20081203, end: 20200106
  5. INTERFERON BETA-1A [Suspect]
     Active Substance: INTERFERON BETA-1A
     Indication: Multiple sclerosis
     Route: 058
     Dates: start: 20200108

REACTIONS (7)
  - Thrombosis [Not Recovered/Not Resolved]
  - Infection [Not Recovered/Not Resolved]
  - Haematoma [Not Recovered/Not Resolved]
  - Contusion [Not Recovered/Not Resolved]
  - Injection site bruising [Unknown]
  - Injection site discolouration [Unknown]
  - Lack of injection site rotation [Recovered/Resolved]

NARRATIVE: CASE EVENT DATE: 20200101
